FAERS Safety Report 7281800-X (Version None)
Quarter: 2011Q1

REPORT INFORMATION
  Report Type: 
  Country: None (occurrence: None)
  Receive Date: 20110208
  Receipt Date: 20100311
  Transmission Date: 20110831
  Serious: Yes (Disabling, Other)
  Sender: FDA-Public Use
  Company Number: US-PFIZER INC-2010014206

PATIENT
  Sex: Male

DRUGS (1)
  1. SUTENT [Suspect]
     Dosage: 37.5 MG FOR 28 DAYS
     Route: 048

REACTIONS (7)
  - BLOOD CREATININE INCREASED [None]
  - EATING DISORDER [None]
  - PLATELET COUNT DECREASED [None]
  - HAEMATOCRIT DECREASED [None]
  - NAUSEA [None]
  - DIZZINESS [None]
  - ASTHENIA [None]
